FAERS Safety Report 8729689 (Version 3)
Quarter: 2012Q4

REPORT INFORMATION
  Report Type: 
  Country: IT (occurrence: IT)
  Receive Date: 20120817
  Receipt Date: 20121119
  Transmission Date: 20130627
  Serious: Yes (Other)
  Sender: FDA-Public Use
  Company Number: IT-INCYTE CORPORATION-2012IN001490

PATIENT
  Age: 61 Year
  Sex: Female
  Weight: 60 kg

DRUGS (6)
  1. INC424 [Suspect]
     Indication: MYELOFIBROSIS
     Dosage: 15 mg, bid
     Route: 065
     Dates: start: 20120215, end: 20120316
  2. INC424 [Suspect]
     Dosage: 5 mg, bid
     Route: 065
     Dates: start: 20120410, end: 20120507
  3. INC424 [Suspect]
     Dosage: 10 mg, bid
     Route: 065
     Dates: start: 20120508, end: 20120619
  4. INC424 [Suspect]
     Dosage: 5 mg, bid
     Route: 065
     Dates: start: 20120620, end: 20121031
  5. ALLOPURINOL [Concomitant]
     Dosage: UNK
     Dates: start: 20060906, end: 20120630
  6. ASA [Concomitant]
     Dosage: UNK
     Dates: start: 20091222, end: 20120316

REACTIONS (3)
  - Hyperuricaemia [Recovered/Resolved]
  - Thrombocytopenia [None]
  - Haematotoxicity [None]
